FAERS Safety Report 8725109 (Version 2)
Quarter: 2014Q1

REPORT INFORMATION
  Report Type: Spontaneous
  Country: US (occurrence: US)
  Receive Date: 20120815
  Receipt Date: 20140319
  Transmission Date: 20141002
  Serious: Yes (Hospitalization)
  Sender: FDA-Public Use
  Company Number: US-GLAXOSMITHKLINE-A0989373A

PATIENT
  Age: 68 Year
  Sex: Male

DRUGS (5)
  1. ADVAIR [Suspect]
     Indication: PRODUCT USED FOR UNKNOWN INDICATION
     Dosage: 1PUFF TWICE PER DAY
     Route: 055
     Dates: start: 201008
  2. SPIRIVA [Concomitant]
  3. METOPROLOL [Concomitant]
  4. COZAAR [Concomitant]
  5. CRESTOR [Concomitant]

REACTIONS (6)
  - Pneumonia [Unknown]
  - Oropharyngeal pain [Unknown]
  - Candida infection [Unknown]
  - Dysphonia [Unknown]
  - Dysphonia [Unknown]
  - Drug ineffective [Unknown]
